FAERS Safety Report 9714304 (Version 3)
Quarter: 2015Q3

REPORT INFORMATION
  Report Type: Spontaneous
  Country: US (occurrence: US)
  Receive Date: 20131126
  Receipt Date: 20150803
  Transmission Date: 20151125
  Serious: No
  Sender: FDA-Public Use
  Company Number: US-GILEAD-2008-0018700

PATIENT
  Age: 61 Year
  Sex: Female

DRUGS (13)
  1. DIGITEK [Concomitant]
     Active Substance: DIGOXIN
  2. AMBIEN [Concomitant]
     Active Substance: ZOLPIDEM TARTRATE
  3. REVATIO [Concomitant]
     Active Substance: SILDENAFIL CITRATE
  4. LETAIRIS [Suspect]
     Active Substance: AMBRISENTAN
     Indication: PULMONARY ARTERIAL HYPERTENSION
     Route: 048
     Dates: start: 20080108
  5. PRIMIDONE. [Concomitant]
     Active Substance: PRIMIDONE
  6. PSYLLIUM HUSK [Concomitant]
     Active Substance: PSYLLIUM HUSK
  7. NEXIUM [Concomitant]
     Active Substance: ESOMEPRAZOLE MAGNESIUM
  8. PROTONIX [Concomitant]
     Active Substance: PANTOPRAZOLE SODIUM
  9. SYNTHROID [Concomitant]
     Active Substance: LEVOTHYROXINE SODIUM
  10. LASIX [Concomitant]
     Active Substance: FUROSEMIDE
  11. TOPAMAX [Concomitant]
     Active Substance: TOPIRAMATE
  12. DARVOCET [Concomitant]
     Active Substance: ACETAMINOPHEN\PROPOXYPHENE HYDROCHLORIDE
  13. KLOR-CON [Concomitant]
     Active Substance: POTASSIUM CHLORIDE

REACTIONS (3)
  - Impaired healing [Unknown]
  - Lichen planus [Unknown]
  - Hair colour changes [Unknown]
